FAERS Safety Report 20530452 (Version 5)
Quarter: 2022Q1

REPORT INFORMATION
  Report Type: Report from Study
  Country: US (occurrence: US)
  Receive Date: 20220301
  Receipt Date: 20220323
  Transmission Date: 20220423
  Serious: Yes (Other)
  Sender: FDA-Public Use
  Company Number: US-HORIZON THERAPEUTICS-HZN-2022-001547

PATIENT

DRUGS (3)
  1. TEPEZZA [Suspect]
     Active Substance: TEPROTUMUMAB-TRBW
     Indication: Endocrine ophthalmopathy
     Dosage: UNK, EVERY 3 WEEKS
     Route: 042
     Dates: start: 202110
  2. TEPEZZA [Suspect]
     Active Substance: TEPROTUMUMAB-TRBW
     Dosage: UNK, EVERY 3 WEEKS
     Route: 042
     Dates: start: 20211118
  3. TEPEZZA [Suspect]
     Active Substance: TEPROTUMUMAB-TRBW
     Dosage: FIFTH DOSE, EVERY 3 WEEKS
     Route: 042

REACTIONS (8)
  - Diabetes mellitus [Not Recovered/Not Resolved]
  - Palpitations [Not Recovered/Not Resolved]
  - Balance disorder [Not Recovered/Not Resolved]
  - Ear discomfort [Not Recovered/Not Resolved]
  - Weight decreased [Not Recovered/Not Resolved]
  - Hypoacusis [Unknown]
  - Diarrhoea [Unknown]
  - Blood pressure increased [Unknown]
